FAERS Safety Report 25638276 (Version 1)
Quarter: 2025Q3

REPORT INFORMATION
  Report Type: Other
  Country: GB (occurrence: GB)
  Receive Date: 20250804
  Receipt Date: 20250804
  Transmission Date: 20251021
  Serious: Yes (Other)
  Sender: GLENMARK
  Company Number: GB-MHRA-TPP36683063C9586445YC1753191914309

PATIENT
  Age: 78 Year
  Sex: Male
  Weight: 85 kg

DRUGS (15)
  1. DAPAGLIFLOZIN [Suspect]
     Active Substance: DAPAGLIFLOZIN
     Indication: Diabetes mellitus
     Dosage: 10 MILLIGRAM, OD
     Route: 065
     Dates: start: 20250715
  2. CARBOMER [Concomitant]
     Active Substance: CARBOMER
     Indication: Ill-defined disorder
     Route: 065
     Dates: start: 20240515
  3. INSTANT [Concomitant]
     Active Substance: ALCOHOL
     Indication: Ill-defined disorder
     Route: 065
     Dates: start: 20240718
  4. Hylo dual [Concomitant]
     Indication: Ill-defined disorder
     Route: 065
     Dates: start: 20240913
  5. AMIODARONE [Concomitant]
     Active Substance: AMIODARONE
     Indication: Ill-defined disorder
     Dosage: UNK, QD, TAKE ONE DAILY
     Route: 065
     Dates: start: 20241106, end: 20250716
  6. BISOPROLOL [Concomitant]
     Active Substance: BISOPROLOL
     Indication: Cardiac disorder
     Dosage: 1 DOSAGE FORM, OD, ONE TABLET ONCE DAILY, TO HELP HEART
     Route: 065
     Dates: start: 20241106
  7. AMLODIPINE [Concomitant]
     Active Substance: AMLODIPINE BESYLATE
     Indication: Ill-defined disorder
     Dosage: 1 DOSAGE FORM, 1 TABLET ONCE DAILY
     Route: 065
     Dates: start: 20250225
  8. ASPIRIN [Concomitant]
     Active Substance: ASPIRIN
     Indication: Ill-defined disorder
     Dosage: UNK, BID, (TAKE TWO DAILY)
     Route: 065
     Dates: start: 20250225
  9. ATORVASTATIN [Concomitant]
     Active Substance: ATORVASTATIN
     Indication: Ill-defined disorder
     Dosage: UNK, QD, TAKE ONE DAILY
     Route: 065
     Dates: start: 20250225
  10. Flexitol [Concomitant]
     Indication: Ill-defined disorder
     Dosage: UNK, BID, APPLY TWICE DAILY AS DIRECTED
     Route: 065
     Dates: start: 20250225
  11. METFORMIN [Concomitant]
     Active Substance: METFORMIN HYDROCHLORIDE
     Indication: Ill-defined disorder
     Route: 065
     Dates: start: 20250225
  12. RAMIPRIL [Concomitant]
     Active Substance: RAMIPRIL
     Indication: Ill-defined disorder
     Dosage: UNK, QD, ONE DAILY AT NIGHT
     Route: 065
     Dates: start: 20250225
  13. RANOLAZINE [Concomitant]
     Active Substance: RANOLAZINE
     Indication: Ill-defined disorder
     Dosage: UNK, BID, TAKE ONE TWICE DAILY
     Route: 065
     Dates: start: 20250225
  14. ISOSORBIDE MONONITRATE [Concomitant]
     Active Substance: ISOSORBIDE MONONITRATE
     Indication: Ill-defined disorder
     Route: 065
     Dates: start: 20250331
  15. NICORANDIL [Concomitant]
     Active Substance: NICORANDIL
     Indication: Ill-defined disorder
     Dosage: UNK, BID, TAKE ONE TWICE DAILY
     Route: 065
     Dates: start: 20250331

REACTIONS (4)
  - Confusional state [Unknown]
  - Lethargy [Recovered/Resolved]
  - Headache [Unknown]
  - Dizziness [Unknown]
